FAERS Safety Report 23279762 (Version 3)
Quarter: 2025Q1

REPORT INFORMATION
  Report Type: Report from Study
  Country: BR (occurrence: BR)
  Receive Date: 20231209
  Receipt Date: 20250306
  Transmission Date: 20250408
  Serious: Yes (Death, Hospitalization, Other)
  Sender: CELLTRION
  Company Number: BR-CELLTRION INC.-2023BR023540

PATIENT

DRUGS (7)
  1. INFLIXIMAB-DYYB [Suspect]
     Active Substance: INFLIXIMAB-DYYB
     Indication: Ankylosing spondylitis
     Route: 042
     Dates: start: 20220901
  2. INFLIXIMAB-DYYB [Suspect]
     Active Substance: INFLIXIMAB-DYYB
     Dates: start: 202301
  3. INFLIXIMAB-DYYB [Suspect]
     Active Substance: INFLIXIMAB-DYYB
     Route: 042
     Dates: start: 20231113
  4. INFLIXIMAB-DYYB [Suspect]
     Active Substance: INFLIXIMAB-DYYB
     Dates: start: 20231204
  5. OMEPRAZOLE [Concomitant]
     Active Substance: OMEPRAZOLE
     Indication: Abdominal pain upper
     Route: 048
  6. VALPROIC ACID [Concomitant]
     Active Substance: VALPROIC ACID
     Indication: Seizure prophylaxis
     Route: 048
  7. ESCITALOPRAM [Concomitant]
     Active Substance: ESCITALOPRAM OXALATE
     Indication: Anxiety
     Route: 048

REACTIONS (12)
  - Death [Fatal]
  - Condition aggravated [Unknown]
  - CSF test abnormal [Not Recovered/Not Resolved]
  - Thrombosis [Not Recovered/Not Resolved]
  - Seizure [Not Recovered/Not Resolved]
  - Chest pain [Not Recovered/Not Resolved]
  - Somniphobia [Not Recovered/Not Resolved]
  - Phobia of driving [Not Recovered/Not Resolved]
  - Phobia [Not Recovered/Not Resolved]
  - Fear [Unknown]
  - Headache [Unknown]
  - Pyrexia [Unknown]

NARRATIVE: CASE EVENT DATE: 20230201
